FAERS Safety Report 16261338 (Version 4)
Quarter: 2020Q3

REPORT INFORMATION
  Report Type: Spontaneous
  Country: US (occurrence: US)
  Receive Date: 20190501
  Receipt Date: 20200821
  Transmission Date: 20201102
  Serious: Yes (Death, Other)
  Sender: FDA-Public Use
  Company Number: US-ASTRAZENECA-2019SE62689

PATIENT
  Age: 89 Year
  Sex: Female
  Weight: 60.8 kg

DRUGS (31)
  1. MYRBETRIQ [Concomitant]
     Active Substance: MIRABEGRON
     Dates: start: 2016
  2. LOSARTAN. [Concomitant]
     Active Substance: LOSARTAN
     Dates: start: 2016
  3. PRILOSEC [Suspect]
     Active Substance: OMEPRAZOLE MAGNESIUM
     Route: 048
     Dates: start: 2015, end: 2019
  4. CALCITRIOL. [Concomitant]
     Active Substance: CALCITRIOL
     Dates: start: 2015, end: 2016
  5. ZOLPIDEM [Concomitant]
     Active Substance: ZOLPIDEM TARTRATE
  6. BACTRIM [Concomitant]
     Active Substance: SULFAMETHOXAZOLE\TRIMETHOPRIM
     Dates: start: 2015
  7. METFORMIN [Concomitant]
     Active Substance: METFORMIN HYDROCHLORIDE
     Indication: DIABETES MELLITUS
     Dates: start: 2015
  8. POTASSIUM [Concomitant]
     Active Substance: POTASSIUM
  9. TOLTERODINE [Concomitant]
     Active Substance: TOLTERODINE
     Dates: start: 2015
  10. GABAPENTIN. [Concomitant]
     Active Substance: GABAPENTIN
     Dates: start: 2016
  11. OXYBUTYNIN. [Concomitant]
     Active Substance: OXYBUTYNIN CHLORIDE
     Dates: start: 2017
  12. PROTONIX [Suspect]
     Active Substance: PANTOPRAZOLE SODIUM
     Route: 065
     Dates: start: 2015, end: 2019
  13. AMLODIPINE [Concomitant]
     Active Substance: AMLODIPINE BESYLATE
     Dates: start: 2015
  14. LEVOTHYROXINE. [Concomitant]
     Active Substance: LEVOTHYROXINE
     Dates: start: 2015, end: 2016
  15. XANAX [Concomitant]
     Active Substance: ALPRAZOLAM
     Indication: ANXIETY
     Dates: start: 2016
  16. PRILOSEC OTC [Suspect]
     Active Substance: OMEPRAZOLE MAGNESIUM
     Route: 048
  17. CHOLECALCIFEROL [Concomitant]
     Active Substance: CHOLECALCIFEROL
  18. SIMVASTATIN. [Concomitant]
     Active Substance: SIMVASTATIN
     Dates: start: 2015
  19. KEFLEX [Concomitant]
     Active Substance: CEPHALEXIN
     Dates: start: 2018
  20. IBUPROFEN. [Concomitant]
     Active Substance: IBUPROFEN
     Indication: HEADACHE
     Dates: start: 2015, end: 2019
  21. VITAMIN B12 [Concomitant]
     Active Substance: CYANOCOBALAMIN
     Dates: start: 2016
  22. PRILOSEC [Suspect]
     Active Substance: OMEPRAZOLE MAGNESIUM
     Route: 048
     Dates: start: 20150126, end: 20170309
  23. MELATONIN [Concomitant]
     Active Substance: MELATONIN
     Indication: SLEEP DISORDER
     Dates: start: 2015, end: 2016
  24. COQ10 [Concomitant]
     Active Substance: UBIDECARENONE
     Dates: start: 2016
  25. PROTONIX [Suspect]
     Active Substance: PANTOPRAZOLE SODIUM
     Route: 065
     Dates: start: 20150126, end: 20170309
  26. PROTONIX [Suspect]
     Active Substance: PANTOPRAZOLE SODIUM
     Dosage: GENERIC
     Route: 065
  27. LOPRESSOR [Concomitant]
     Active Substance: METOPROLOL TARTRATE
     Indication: BLOOD PRESSURE ABNORMAL
     Dates: start: 2015
  28. ASPIRIN. [Concomitant]
     Active Substance: ASPIRIN
     Indication: HEADACHE
     Dates: start: 2015, end: 2019
  29. PRILOSEC [Suspect]
     Active Substance: OMEPRAZOLE MAGNESIUM
     Dosage: GENERIC
     Route: 065
  30. PREVNAR [Concomitant]
     Active Substance: PNEUMOCOCCAL 7-VALENT CONJUGATE VACCINE (DIPHTHERIA CRM197 PROTEIN)
     Dates: start: 2016
  31. SULFAMETHOXAZOLE [Concomitant]
     Active Substance: SULFAMETHOXAZOLE
     Dates: start: 2015

REACTIONS (6)
  - Acute kidney injury [Fatal]
  - Septic shock [Fatal]
  - Cardio-respiratory arrest [Fatal]
  - Chronic kidney disease [Unknown]
  - End stage renal disease [Unknown]
  - Renal failure [Unknown]

NARRATIVE: CASE EVENT DATE: 2015
